FAERS Safety Report 5055051-3 (Version None)
Quarter: 2006Q2

REPORT INFORMATION
  Report Type: 
  Country: None (occurrence: None)
  Receive Date: 20060614
  Receipt Date: 20060428
  Transmission Date: 20061013
  Serious: Yes (Other)
  Sender: FDA-Public Use
  Company Number: 446300

PATIENT
  Age: 67 Year
  Sex: Female

DRUGS (9)
  1. BONIVA [Suspect]
     Indication: OSTEOPENIA
     Dosage: 1 PER MONTH  ORAL
     Route: 048
     Dates: start: 20060313, end: 20060414
  2. WELLBUTRIN XL [Suspect]
     Indication: DRUG USE FOR UNKNOWN INDICATION
  3. LIPITOR [Concomitant]
  4. LEVOXYL [Concomitant]
  5. DIOVAN [Concomitant]
  6. ACIPHEX [Concomitant]
  7. VOLTAREN [Concomitant]
  8. CENTRUM (MINERALS NOS/MULTIVITAMIN NOS) [Concomitant]
  9. CALCIUM SUPPLEMENT (CALCIUM) [Concomitant]

REACTIONS (4)
  - BONE PAIN [None]
  - INFLUENZA LIKE ILLNESS [None]
  - MYALGIA [None]
  - NAUSEA [None]
